FAERS Safety Report 8520435-5 (Version None)
Quarter: 2012Q3

REPORT INFORMATION
  Report Type: 
  Country: None (occurrence: None)
  Receive Date: 20120719
  Receipt Date: 20120713
  Transmission Date: 20120928
  Serious: Yes (Death, Other)
  Sender: FDA-Public Use
  Company Number: AU-009507513-2012SP001065

PATIENT

DRUGS (1)
  1. IMPLANON NXT [Suspect]
     Indication: PRODUCT USED FOR UNKNOWN INDICATION
     Dosage: UNK UNK, UNKNOWN
     Route: 065
     Dates: start: 20110101, end: 20120106

REACTIONS (2)
  - CAESAREAN SECTION [None]
  - PREGNANCY WITH IMPLANT CONTRACEPTIVE [None]
